FAERS Safety Report 8485415-7 (Version None)
Quarter: 2012Q3

REPORT INFORMATION
  Report Type: 
  Country: None (occurrence: None)
  Receive Date: 20120703
  Receipt Date: 20120627
  Transmission Date: 20120928
  Serious: Yes (Other)
  Sender: FDA-Public Use
  Company Number: PHHY2012CA053900

PATIENT
  Sex: Male

DRUGS (4)
  1. DULOXETIME HYDROCHLORIDE [Concomitant]
     Dosage: 30 MG, QD
     Route: 048
  2. FUROSEMIDE [Concomitant]
     Dosage: 20 MG, QH
     Dates: start: 20120317
  3. CLOZARIL [Suspect]
     Indication: PARKINSON'S DISEASE
     Dosage: 250 MG, QH
     Dates: start: 20120403, end: 20120609
  4. SINEMET [Concomitant]
     Route: 048

REACTIONS (3)
  - FALL [None]
  - HYPOTENSION [None]
  - SALIVARY HYPERSECRETION [None]
